FAERS Safety Report 8257541-9 (Version None)
Quarter: 2012Q2

REPORT INFORMATION
  Report Type: 
  Country: None (occurrence: None)
  Receive Date: 20120403
  Receipt Date: 20120328
  Transmission Date: 20120825
  Serious: Yes (Hospitalization)
  Sender: FDA-Public Use
  Company Number: FR-B.I. PHARMACEUTICALS,INC./RIDGEFIELD-2012-FF-00374FF

PATIENT
  Sex: Female

DRUGS (10)
  1. PRAMIPEXOLE DIHYDROCHLORIDE [Suspect]
     Indication: RESTLESS LEGS SYNDROME
     Dosage: 1.05 MG
     Route: 048
  2. IMURAN [Concomitant]
     Dosage: 100 MG
     Route: 048
     Dates: start: 20040101, end: 20120211
  3. AMANTADINE HCL [Suspect]
     Dosage: 200 MG
     Route: 048
  4. ESCITALOPRAM OXALATE [Suspect]
     Dosage: 5 MG
     Route: 048
     Dates: start: 20110901
  5. ACETAMINOPHEN [Concomitant]
     Dosage: 3 G
     Route: 048
  6. LEVOTHYROXINE SODIUM [Concomitant]
     Dosage: 12.5 MCG
     Route: 048
  7. HYZAAR [Suspect]
     Indication: HYPERTENSION
     Dosage: 50MG/12.5MG
     Route: 048
  8. FOLIC ACID [Concomitant]
     Dosage: 10 MG
     Route: 048
  9. CLONAZEPAM [Concomitant]
     Dosage: 20 ANZ
     Route: 048
  10. LEVOTHYROXINE SODIUM [Concomitant]
     Indication: HYPOTHYROIDISM
     Dosage: 175 MCG
     Route: 048

REACTIONS (1)
  - RHABDOMYOLYSIS [None]
